FAERS Safety Report 24903395 (Version 1)
Quarter: 2025Q1

REPORT INFORMATION
  Report Type: Spontaneous
  Country: US (occurrence: TT)
  Receive Date: 20250130
  Receipt Date: 20250130
  Transmission Date: 20250409
  Serious: No
  Sender: BRISTOL-MYERS SQUIBB COMPANY
  Company Number: US-BRISTOL-MYERS SQUIBB COMPANY-2025-008355

PATIENT
  Age: 51 Year
  Sex: Male
  Weight: 90.7 kg

DRUGS (6)
  1. ELIQUIS [Suspect]
     Active Substance: APIXABAN
     Indication: Pulmonary embolism
     Dates: start: 20241215
  2. ELIQUIS [Suspect]
     Active Substance: APIXABAN
     Dosage: STRENGTH : 2.5 MG ?ELIQUIS FROM TRINIDAD THE (2.5MG) TABLETS - TOOK (2) IN THE MORNING AND (2) IN TH
     Dates: start: 20241215
  3. GABAPENTIN [Concomitant]
     Active Substance: GABAPENTIN
     Indication: Cerebrovascular accident
  4. GABAPENTIN [Concomitant]
     Active Substance: GABAPENTIN
     Indication: Myocardial infarction
  5. AMLODIPINE [Concomitant]
     Active Substance: AMLODIPINE BESYLATE
     Indication: Cerebrovascular accident
  6. AMLODIPINE [Concomitant]
     Active Substance: AMLODIPINE BESYLATE
     Indication: Myocardial infarction

REACTIONS (4)
  - Expired product administered [Unknown]
  - Throat irritation [Unknown]
  - Pruritus [Unknown]
  - Product taste abnormal [Unknown]
